FAERS Safety Report 12571840 (Version 2)
Quarter: 2018Q4

REPORT INFORMATION
  Report Type: Spontaneous
  Country: US (occurrence: US)
  Receive Date: 20160719
  Receipt Date: 20181204
  Transmission Date: 20190204
  Serious: No
  Sender: FDA-Public Use
  Company Number: US-APOTEX-2016AP009283

PATIENT
  Age: 80 Year
  Sex: Female

DRUGS (1)
  1. OMEPRAZOLE. [Suspect]
     Active Substance: OMEPRAZOLE
     Indication: PRODUCT USED FOR UNKNOWN INDICATION
     Dosage: 1 DF, Q.AM
     Route: 048

REACTIONS (4)
  - Dyspepsia [Recovered/Resolved]
  - Throat irritation [Recovered/Resolved]
  - Product substitution issue [Recovered/Resolved]
  - Drug ineffective [Unknown]
